FAERS Safety Report 25161066 (Version 2)
Quarter: 2025Q2

REPORT INFORMATION
  Report Type: Report from Study
  Country: US (occurrence: US)
  Receive Date: 20250404
  Receipt Date: 20250423
  Transmission Date: 20250717
  Serious: No
  Sender: ACADIA PHARMACEUTICALS
  Company Number: US-ACADIA PHARMACEUTICALS INC.-ACA-2025-TRF-002616

PATIENT
  Sex: Female

DRUGS (5)
  1. DAYBUE [Suspect]
     Active Substance: TROFINETIDE
     Indication: Rett syndrome
     Dosage: 2.5 MILLILITER, BID
     Route: 048
     Dates: start: 20250304
  2. DAYBUE [Suspect]
     Active Substance: TROFINETIDE
     Dosage: 60 MILLILITER, QD
     Route: 048
  3. DAYBUE [Suspect]
     Active Substance: TROFINETIDE
     Dosage: 3.5 UNK
     Route: 065
  4. DAYBUE [Suspect]
     Active Substance: TROFINETIDE
     Route: 065
  5. DAYBUE [Suspect]
     Active Substance: TROFINETIDE
     Dosage: 2 MILLILITER, BID
     Route: 048

REACTIONS (4)
  - Constipation [Recovered/Resolved]
  - Diarrhoea [Not Recovered/Not Resolved]
  - Intentional underdose [Not Recovered/Not Resolved]
  - Incorrect dose administered [Not Recovered/Not Resolved]
